FAERS Safety Report 8615251-X (Version None)
Quarter: 2012Q3

REPORT INFORMATION
  Report Type: 
  Country: None (occurrence: None)
  Receive Date: 20120823
  Receipt Date: 20120821
  Transmission Date: 20120928
  Serious: Yes (Other)
  Sender: FDA-Public Use
  Company Number: US-PFIZER INC-2012205571

PATIENT
  Age: 54 Year
  Sex: Female
  Weight: 57.596 kg

DRUGS (9)
  1. EFFEXOR XR [Suspect]
     Indication: ELEVATED MOOD
     Dosage: 150 MG, 1X/DAY
     Route: 048
     Dates: end: 20120701
  2. AMLODIPINE [Concomitant]
     Dosage: 10 MG, 1X/DAY
  3. MORPHINE [Concomitant]
     Dosage: 50 MG, 2X/DAY
  4. NORTRIPTYLINE [Concomitant]
     Indication: MIGRAINE
     Dosage: 50 MG, 1X/DAY
  5. ALPRAZOLAM [Concomitant]
     Dosage: 2 MG, 3X/DAY
  6. METOPROLOL [Concomitant]
     Dosage: 50 MG, 1X/DAY
  7. HYDROXYZINE [Concomitant]
     Indication: HYPERSENSITIVITY
     Dosage: 25 MG, UNK
  8. HYDROCODONE BITARTRATE + ACETAMINOPHEN [Concomitant]
     Dosage: 750/10 MG, 4X/DAY
  9. CARISOPRODOL [Concomitant]
     Indication: MUSCLE RELAXANT THERAPY
     Dosage: 350 MG, 3X/DAY

REACTIONS (5)
  - HYPERTENSION [None]
  - CARDIAC DISCOMFORT [None]
  - HYPERHIDROSIS [None]
  - VEIN DISORDER [None]
  - HEADACHE [None]
